FAERS Safety Report 22031460 (Version 1)
Quarter: 2023Q1

REPORT INFORMATION
  Report Type: Spontaneous
  Country: US (occurrence: None)
  Receive Date: 20230224
  Receipt Date: 20230224
  Transmission Date: 20230418
  Serious: No
  Sender: FDA-Public Use
  Company Number: US-Unichem Pharmaceuticals (USA) Inc-UCM202301-000038

PATIENT
  Sex: Male

DRUGS (1)
  1. ALFUZOSIN [Suspect]
     Active Substance: ALFUZOSIN
     Indication: Product used for unknown indication

REACTIONS (1)
  - Dizziness [Unknown]
